FAERS Safety Report 6861215-6 (Version None)
Quarter: 2010Q3

REPORT INFORMATION
  Report Type: 
  Country: None (occurrence: None)
  Receive Date: 20100720
  Receipt Date: 20100716
  Transmission Date: 20110219
  Serious: Yes (Death, Other)
  Sender: FDA-Public Use
  Company Number: PHEH2010US02570

PATIENT
  Sex: Female

DRUGS (3)
  1. FEMARA [Suspect]
     Indication: BREAST CANCER METASTATIC
     Dosage: 2.5 MG, QD
     Route: 048
     Dates: start: 20060617
  2. ZOMETA [Concomitant]
     Route: 042
  3. FASLODEX [Concomitant]
     Indication: BREAST CANCER METASTATIC
     Dosage: 250 MG EVERY 4 WEEKS
     Route: 030
     Dates: start: 20090912

REACTIONS (7)
  - ARTHRALGIA [None]
  - BONE PAIN [None]
  - DEATH [None]
  - FATIGUE [None]
  - MALAISE [None]
  - MALIGNANT NEOPLASM PROGRESSION [None]
  - METASTASES TO BONE [None]
